FAERS Safety Report 11275122 (Version 2)
Quarter: 2015Q3

REPORT INFORMATION
  Report Type: Report from Study
  Country: GB (occurrence: GB)
  Receive Date: 20150716
  Receipt Date: 20150826
  Transmission Date: 20151125
  Serious: Yes (Other)
  Sender: FDA-Public Use
  Company Number: GB-AMGEN-GBRNI2015070897

PATIENT
  Age: 6 Year
  Sex: Female
  Weight: 20 kg

DRUGS (2)
  1. ETANERCEPT [Suspect]
     Active Substance: ETANERCEPT
     Indication: POLYARTHRITIS
  2. ETANERCEPT [Suspect]
     Active Substance: ETANERCEPT
     Indication: JUVENILE IDIOPATHIC ARTHRITIS
     Dosage: 10 MG, 2X/WEEK
     Route: 065
     Dates: start: 20070625

REACTIONS (1)
  - Iridocyclitis [Unknown]

NARRATIVE: CASE EVENT DATE: 20071002
